FAERS Safety Report 16935775 (Version 1)
Quarter: 2019Q4

REPORT INFORMATION
  Report Type: Spontaneous
  Country: US (occurrence: US)
  Receive Date: 20191018
  Receipt Date: 20191018
  Transmission Date: 20200122
  Serious: Yes (Hospitalization)
  Sender: FDA-Public Use
  Company Number: US-PERRIGO-19US010748

PATIENT
  Age: 53 Year
  Sex: Female
  Weight: 108.84 kg

DRUGS (4)
  1. ENTOCORT EC [Suspect]
     Active Substance: BUDESONIDE
     Indication: CROHN^S DISEASE
     Dosage: 9 MG, QD
     Route: 048
     Dates: start: 2007
  2. ENTOCORT EC [Suspect]
     Active Substance: BUDESONIDE
     Dosage: TAPERED DOWN TO 3 MG QD, THREE TIMES
     Route: 048
     Dates: start: 2016, end: 2017
  3. GABAPENTIN. [Concomitant]
     Active Substance: GABAPENTIN
     Indication: FIBROMYALGIA
     Dosage: UNKNOWN, UNKNOWN
     Route: 065
     Dates: start: 2016
  4. ENTYVIO [Concomitant]
     Active Substance: VEDOLIZUMAB
     Indication: CROHN^S DISEASE
     Dosage: UNKNOWN, UNKNOWN
     Route: 065
     Dates: start: 2018

REACTIONS (3)
  - Product administration error [Unknown]
  - Anaphylactic shock [Recovered/Resolved]
  - Skin atrophy [Unknown]

NARRATIVE: CASE EVENT DATE: 2007
